FAERS Safety Report 9695111 (Version 2)
Quarter: 2013Q4

REPORT INFORMATION
  Report Type: Report from Study
  Country: AU (occurrence: AU)
  Receive Date: 20131119
  Receipt Date: 20131126
  Transmission Date: 20140711
  Serious: Yes (Hospitalization, Other)
  Sender: FDA-Public Use
  Company Number: PHHY2013AU129826

PATIENT
  Age: 58 Year
  Sex: Male

DRUGS (6)
  1. GILENYA [Suspect]
     Indication: MULTIPLE SCLEROSIS
     Dosage: 0.5 MG, QD
     Route: 048
     Dates: start: 20130114
  2. ROSUVASTATIN [Concomitant]
     Dosage: 40 MG, DAY
  3. ASPIRIN [Concomitant]
     Dosage: 100 MG, DAY
  4. HYDROCHLOROTHIAZIDE W/TELMISARTAN [Concomitant]
     Dosage: 12.580 MG, QD
  5. CALCITROL [Concomitant]
     Dosage: 0.25 UG, DAY
  6. FENOFIBRATE [Concomitant]
     Dosage: 145 MG, DAY

REACTIONS (4)
  - Embolism [Unknown]
  - Vertigo [Unknown]
  - Ataxia [Unknown]
  - Muscular weakness [Unknown]
